FAERS Safety Report 4531051-4 (Version None)
Quarter: 2004Q4

REPORT INFORMATION
  Report Type: 
  Country: None (occurrence: None)
  Receive Date: 20041215
  Receipt Date: 20041202
  Transmission Date: 20050328
  Serious: Yes (Hospitalization)
  Sender: FDA-Public Use
  Company Number: 2004108891

PATIENT
  Age: 56 Year
  Sex: Female

DRUGS (3)
  1. TOLTERODINE (TOLTERODINE) [Suspect]
     Indication: HYPERTONIC BLADDER
  2. PROPRANOLOL [Concomitant]
  3. ESTRADIOL VALERATE (ESTRADIOL VALERATE) [Concomitant]

REACTIONS (2)
  - ANGINA PECTORIS [None]
  - MYOCARDIAL INFARCTION [None]
